FAERS Safety Report 16910621 (Version 2)
Quarter: 2019Q4

REPORT INFORMATION
  Report Type: Spontaneous
  Country: BN (occurrence: BN)
  Receive Date: 20191011
  Receipt Date: 20191015
  Transmission Date: 20200122
  Serious: Yes (Death, Hospitalization)
  Sender: FDA-Public Use
  Company Number: BN-B.I. PHARMACEUTICALS,INC./RIDGEFIELD-2019-BI-106629

PATIENT
  Age: 52 Year
  Sex: Male

DRUGS (1)
  1. PRADAXA [Suspect]
     Active Substance: DABIGATRAN ETEXILATE MESYLATE
     Indication: PRODUCT USED FOR UNKNOWN INDICATION
     Route: 065
     Dates: end: 20191006

REACTIONS (3)
  - Injury [Fatal]
  - Intra-abdominal haemorrhage [Fatal]
  - Arterial rupture [Fatal]

NARRATIVE: CASE EVENT DATE: 20191006
